FAERS Safety Report 8561859-X (Version None)
Quarter: 2012Q3

REPORT INFORMATION
  Report Type: 
  Country: None (occurrence: None)
  Receive Date: 20120802
  Receipt Date: 20120712
  Transmission Date: 20120928
  Serious: No
  Sender: FDA-Public Use
  Company Number: US-AMGEN-USASP2012013811

PATIENT
  Age: 82 Year
  Sex: Female

DRUGS (3)
  1. ENBREL [Suspect]
     Indication: ANKYLOSING SPONDYLITIS
  2. ENBREL [Suspect]
     Indication: RHEUMATOID ARTHRITIS
     Dosage: 50 MG, QWK
     Dates: start: 20000101
  3. ORENCIA [Concomitant]
     Dosage: UNK

REACTIONS (8)
  - THERAPEUTIC RESPONSE DECREASED [None]
  - MALAISE [None]
  - BACK PAIN [None]
  - SOCIAL PROBLEM [None]
  - FATIGUE [None]
  - RHEUMATOID ARTHRITIS [None]
  - DEPRESSED MOOD [None]
  - EMOTIONAL DISTRESS [None]
